FAERS Safety Report 9724921 (Version 1)
Quarter: 2013Q4

REPORT INFORMATION
  Report Type: Spontaneous
  Country: US (occurrence: US)
  Receive Date: 20131202
  Receipt Date: 20131202
  Transmission Date: 20140711
  Serious: Yes (Other)
  Sender: FDA-Public Use
  Company Number: US-ENDO PHARMACEUTICALS INC.-OXYC20120058

PATIENT
  Sex: Female

DRUGS (1)
  1. OXYCODONE HCL 5MG [Suspect]
     Indication: PAIN
     Route: 048
     Dates: start: 2012

REACTIONS (2)
  - Drug abuse [Unknown]
  - Drug screen negative [Unknown]
